FAERS Safety Report 10141819 (Version 3)
Quarter: 2014Q2

REPORT INFORMATION
  Report Type: Spontaneous
  Country: CA (occurrence: CA)
  Receive Date: 20140429
  Receipt Date: 20140602
  Transmission Date: 20141212
  Serious: Yes (Disabling)
  Sender: FDA-Public Use
  Company Number: CA-TAKEDA-2014TUS003295

PATIENT
  Age: 62 Year
  Sex: Female

DRUGS (5)
  1. DEXILANT [Suspect]
     Dosage: 60 MG, QD
     Route: 048
     Dates: start: 20130801, end: 20130826
  2. CRESTOR [Concomitant]
     Dosage: 10 MG, QD
     Route: 048
     Dates: start: 20130522
  3. D-TABS [Concomitant]
     Dosage: 10000 IU, 1/WEEK
     Route: 048
     Dates: start: 20131211
  4. DIOVAN [Concomitant]
     Dosage: 80 MG, QD
     Route: 048
     Dates: start: 20130603
  5. PANTOPRAZOLE [Concomitant]
     Dosage: 40 MG, BID, STARTED TAKING AGAIN SINCE STOPPED TAKING DEXILANT DUE TO SIDE EFFECTS
     Route: 048

REACTIONS (2)
  - Product substitution issue [Recovered/Resolved]
  - Headache [Recovered/Resolved]
